FAERS Safety Report 6611352-6 (Version None)
Quarter: 2010Q1

REPORT INFORMATION
  Report Type: 
  Country: None (occurrence: None)
  Receive Date: 20100301
  Receipt Date: 20100301
  Transmission Date: 20100710
  Serious: Yes (Life-Threatening)
  Sender: FDA-Public Use
  Company Number: None

PATIENT
  Sex: Male
  Weight: 114.9 kg

DRUGS (2)
  1. VORINOSTAT 100MG CAPSULE MERCK [Suspect]
     Indication: LUNG NEOPLASM MALIGNANT
     Dosage: 400 MG DAILY DAYS 1-14 ORAL
     Route: 048
     Dates: start: 20100208, end: 20100221
  2. BORTEZOMIB 3.5MG VIAL MILLENIUM PHARMACEUTICALS [Suspect]
     Indication: LUNG NEOPLASM MALIGNANT
     Dosage: 0.7MG/M2 (1.7MG) DAYS 1, 4, 8, 11 INTRAVENOUS BOLUS
     Route: 040
     Dates: start: 20100208, end: 20100218

REACTIONS (1)
  - PULMONARY EMBOLISM [None]
